FAERS Safety Report 8800100 (Version 2)
Quarter: 2015Q2

REPORT INFORMATION
  Report Type: Report from Study
  Country: US (occurrence: US)
  Receive Date: 20120921
  Receipt Date: 20150623
  Transmission Date: 20150821
  Serious: Yes (Death, Life-Threatening)
  Sender: FDA-Public Use
  Company Number: US-ROCHE-1124789

PATIENT
  Sex: Male
  Weight: 84 kg

DRUGS (19)
  1. DEXAMETHAZONE [Concomitant]
     Active Substance: DEXAMETHASONE
     Route: 048
  2. MARINOL (UNITED STATES) [Concomitant]
     Route: 048
  3. AVASTIN [Suspect]
     Active Substance: BEVACIZUMAB
     Route: 065
  4. NORVASC [Concomitant]
     Active Substance: AMLODIPINE BESYLATE
     Route: 048
  5. AVASTIN [Suspect]
     Active Substance: BEVACIZUMAB
     Indication: BRAIN NEOPLASM MALIGNANT
     Route: 042
     Dates: start: 20070110
  6. LOVENOX [Concomitant]
     Active Substance: ENOXAPARIN SODIUM
  7. LEXAPRO [Concomitant]
     Active Substance: ESCITALOPRAM OXALATE
     Route: 048
  8. LEVAQUIN [Concomitant]
     Active Substance: LEVOFLOXACIN
     Route: 048
  9. ALBUTEROL SULFATE. [Concomitant]
     Active Substance: ALBUTEROL SULFATE
  10. VICODIN [Concomitant]
     Active Substance: ACETAMINOPHEN\HYDROCODONE BITARTRATE
  11. WELLBUTRIN [Concomitant]
     Active Substance: BUPROPION HYDROCHLORIDE
     Route: 048
  12. LEVOCET [Concomitant]
     Active Substance: LEVOCETIRIZINE DIHYDROCHLORIDE
     Route: 048
  13. SENOKOT [Concomitant]
     Active Substance: SENNOSIDES
  14. AMBIEN [Concomitant]
     Active Substance: ZOLPIDEM TARTRATE
     Route: 048
  15. TRIAZ [Concomitant]
     Active Substance: BENZOYL PEROXIDE
  16. CHANTIX [Concomitant]
     Active Substance: VARENICLINE TARTRATE
  17. DECADRON [Concomitant]
     Active Substance: DEXAMETHASONE
     Route: 065
  18. NEXIUM [Concomitant]
     Active Substance: ESOMEPRAZOLE MAGNESIUM
     Route: 048
  19. MIRALAX [Concomitant]
     Active Substance: POLYETHYLENE GLYCOL 3350
     Route: 065

REACTIONS (11)
  - Off label use [Unknown]
  - Dizziness [Unknown]
  - Insomnia [Unknown]
  - Decreased appetite [Unknown]
  - Peripheral swelling [Unknown]
  - Pulmonary embolism [Unknown]
  - Death [Fatal]
  - Headache [Unknown]
  - Asthenia [Unknown]
  - Constipation [Unknown]
  - Folliculitis [Unknown]
